FAERS Safety Report 23724351 (Version 1)
Quarter: 2024Q2

REPORT INFORMATION
  Report Type: Spontaneous
  Country: US (occurrence: US)
  Receive Date: 20240409
  Receipt Date: 20240409
  Transmission Date: 20240716
  Serious: Yes (Hospitalization)
  Sender: FDA-Public Use
  Company Number: US-LUNDBECK-DKLU3076365

PATIENT
  Age: 5 Year
  Sex: Male

DRUGS (2)
  1. SABRIL [Suspect]
     Active Substance: VIGABATRIN
     Indication: Lennox-Gastaut syndrome
     Route: 048
     Dates: start: 20240309
  2. VIGABATRIN [Concomitant]
     Active Substance: VIGABATRIN
     Indication: Lennox-Gastaut syndrome
     Route: 065

REACTIONS (1)
  - Pneumonia [Not Recovered/Not Resolved]
